FAERS Safety Report 4801183-1 (Version None)
Quarter: 2005Q4

REPORT INFORMATION
  Report Type: 
  Country: None (occurrence: None)
  Receive Date: 20051011
  Receipt Date: 20050928
  Transmission Date: 20060501
  Serious: Yes (Hospitalization, Other)
  Sender: FDA-Public Use
  Company Number: HQWYE767630SEP05

PATIENT
  Age: 43 Year
  Sex: Female

DRUGS (5)
  1. ADVIL [Suspect]
     Indication: HEADACHE
     Dosage: ORAL
     Route: 048
     Dates: start: 20050725, end: 20050728
  2. EFFERALGAN (PARACETAMOL, ) [Suspect]
     Indication: HEADACHE
     Dates: start: 20050725, end: 20050728
  3. PROPOFAN (CAFFEINE/CARBASALATE CALCUM/CHLORPHENAMINE MALEATE/DEXTROPRO [Suspect]
     Indication: HEADACHE
     Dates: start: 20050725, end: 20050728
  4. VOGALENE (METOPIMAZINE, ) [Suspect]
     Indication: NAUSEA
     Dates: start: 20050725, end: 20050728
  5. VOGALENE (METOPIMAZINE, ) [Suspect]
     Indication: VOMITING
     Dates: start: 20050725, end: 20050728

REACTIONS (4)
  - BLOOD PRESSURE ABNORMAL [None]
  - MENINGOCOCCAL INFECTION [None]
  - OLIGURIA [None]
  - PNEUMONIA [None]
